FAERS Safety Report 4557964-5 (Version None)
Quarter: 2005Q1

REPORT INFORMATION
  Report Type: 
  Country: None (occurrence: None)
  Receive Date: 20050121
  Receipt Date: 20040310
  Transmission Date: 20050727
  Serious: No
  Sender: FDA-Public Use
  Company Number: US-BRISTOL-MYERS SQUIBB COMPANY-12531596

PATIENT
  Age: 3 Year
  Sex: Male

DRUGS (1)
  1. SERZONE [Suspect]
     Route: 064

REACTIONS (1)
  - AUTISM [None]
